FAERS Safety Report 5750052-1 (Version None)
Quarter: 2008Q2

REPORT INFORMATION
  Report Type: 
  Country: None (occurrence: None)
  Receive Date: 20080527
  Receipt Date: 20080516
  Transmission Date: 20081010
  Serious: Yes (Hospitalization)
  Sender: FDA-Public Use
  Company Number: IE-GENENTECH-256481

PATIENT
  Sex: Female
  Weight: 66.7 kg

DRUGS (2)
  1. MABTHERA [Suspect]
     Indication: ANAEMIA HAEMOLYTIC AUTOIMMUNE
     Dosage: UNK, UNK
     Route: 042
     Dates: start: 20080215, end: 20080215
  2. FOLIC ACID [Concomitant]
     Indication: DRUG USE FOR UNKNOWN INDICATION

REACTIONS (2)
  - BACK PAIN [None]
  - HEMIPLEGIA [None]
